FAERS Safety Report 22149969 (Version 2)
Quarter: 2023Q2

REPORT INFORMATION
  Report Type: Spontaneous
  Country: US (occurrence: US)
  Receive Date: 20230329
  Receipt Date: 20230425
  Transmission Date: 20230722
  Serious: Yes (Hospitalization, Disabling, Other)
  Sender: FDA-Public Use
  Company Number: US-009507513-2303USA007235

PATIENT
  Sex: Male

DRUGS (3)
  1. TEMODAR [Suspect]
     Active Substance: TEMOZOLOMIDE
     Indication: Spinal cord neoplasm
     Dosage: UNK
     Route: 048
     Dates: start: 2011, end: 2015
  2. TEMODAR [Suspect]
     Active Substance: TEMOZOLOMIDE
     Dosage: ^MAINTENANCE DOSE^, 300 MILLIGRAM (MG), 5 DAYS A MONTH
     Route: 048
     Dates: start: 202204, end: 202211
  3. TEMODAR [Suspect]
     Active Substance: TEMOZOLOMIDE
     Dosage: 170 MILLIGRAM, QD
     Route: 048

REACTIONS (8)
  - Cerebrospinal fluid leakage [Unknown]
  - Tumour excision [Unknown]
  - Spinal cord neoplasm [Not Recovered/Not Resolved]
  - Hypoaesthesia [Unknown]
  - Hemiparesis [Not Recovered/Not Resolved]
  - Neoplasm recurrence [Unknown]
  - Condition aggravated [Unknown]
  - Product use in unapproved indication [Unknown]

NARRATIVE: CASE EVENT DATE: 20110101
